FAERS Safety Report 14643010 (Version 1)
Quarter: 2018Q1

REPORT INFORMATION
  Report Type: Spontaneous
  Country: JP (occurrence: JP)
  Receive Date: 20180315
  Receipt Date: 20180315
  Transmission Date: 20180509
  Serious: Yes (Hospitalization)
  Sender: FDA-Public Use
  Company Number: JP-MYLANLABS-2018M1016777

PATIENT
  Age: 75 Year
  Sex: Male

DRUGS (1)
  1. TRIAMCINOLONE MYLAN [Suspect]
     Active Substance: TRIAMCINOLONE
     Indication: MACULAR OEDEMA
     Dosage: POSTERIOR SUBTENON INJECTION
     Route: 031
     Dates: start: 201509

REACTIONS (2)
  - Scedosporium infection [Recovering/Resolving]
  - Infective scleritis [Recovering/Resolving]

NARRATIVE: CASE EVENT DATE: 201511
